FAERS Safety Report 10217211 (Version 1)
Quarter: 2014Q2

REPORT INFORMATION
  Report Type: Spontaneous
  Country: GR (occurrence: GR)
  Receive Date: 20140604
  Receipt Date: 20140604
  Transmission Date: 20141212
  Serious: Yes (Disabling)
  Sender: FDA-Public Use
  Company Number: GR-WATSON-2014-12007

PATIENT
  Age: 52 Year
  Sex: Male

DRUGS (1)
  1. GENTAMICIN (UNKNOWN) [Suspect]
     Indication: VITRECTOMY
     Dosage: 0.5 ML OF 0.4 MG/ML, UNKNOWN
     Route: 057

REACTIONS (4)
  - Retinal haemorrhage [Unknown]
  - Retinal oedema [Unknown]
  - Retinal exudates [Unknown]
  - Retinal infarction [Unknown]
